FAERS Safety Report 10884614 (Version 1)
Quarter: 2015Q1

REPORT INFORMATION
  Report Type: Spontaneous
  Country: AR (occurrence: None)
  Receive Date: 20150227
  Receipt Date: 20150227
  Transmission Date: 20150721
  Serious: Yes (Hospitalization, Other)
  Sender: FDA-Public Use
  Company Number: FK201500923

PATIENT
  Age: 27 Year
  Sex: Male

DRUGS (4)
  1. CORTICOSTEROIDS [Suspect]
     Active Substance: CORTICOSTEROID NOS
     Indication: RENAL TRANSPLANT
     Dosage: 1 MG/KG, DAILY, DURING 1ST WEEK, UNKNOWN
  2. TACROLIMUS (TACROLIMUS) [Suspect]
     Active Substance: TACROLIMUS
     Indication: RENAL TRANSPLANT
  3. MYCOPHENOLATE SODIUM [Suspect]
     Active Substance: MYCOPHENOLATE SODIUM
     Indication: RENAL TRANSPLANT
  4. METHYLPREDNISOLONE. [Suspect]
     Active Substance: METHYLPREDNISOLONE
     Indication: TRANSPLANT REJECTION
     Dosage: 500 MG, PULSE THERAPY

REACTIONS (4)
  - Pneumocystis jirovecii infection [None]
  - Transplant rejection [None]
  - Herpes ophthalmic [None]
  - American trypanosomiasis [None]
